FAERS Safety Report 8138843-3 (Version None)
Quarter: 2012Q1

REPORT INFORMATION
  Report Type: 
  Country: None (occurrence: None)
  Receive Date: 20120215
  Receipt Date: 20120203
  Transmission Date: 20120608
  Serious: Yes (Hospitalization)
  Sender: FDA-Public Use
  Company Number: JP-ELI_LILLY_AND_COMPANY-JP201201008212

PATIENT
  Age: 71 Year
  Sex: Female

DRUGS (6)
  1. LOXOPROFEN SODIUM [Concomitant]
     Indication: BACK PAIN
     Dosage: UNK, PRN
     Route: 048
     Dates: start: 20111201
  2. ONE ALPHA [Concomitant]
     Indication: OSTEOPOROSIS
     Dosage: 0.5 UG, QD
     Route: 048
     Dates: end: 20120115
  3. EVISTA [Concomitant]
     Indication: OSTEOPOROSIS
     Dosage: 1 DF, QD
     Route: 048
     Dates: end: 20120115
  4. REBAMIPIDE [Concomitant]
     Indication: BACK PAIN
     Dosage: UNK, PRN
     Route: 048
     Dates: start: 20111201
  5. FORTEO [Suspect]
     Indication: OSTEOPOROSIS
     Dosage: UNK
     Route: 058
     Dates: start: 20120116, end: 20120122
  6. CANDESARTAN CILEXETIL [Concomitant]
     Dosage: UNK
     Route: 048

REACTIONS (1)
  - HERPES ZOSTER [None]
